FAERS Safety Report 25711823 (Version 1)
Quarter: 2025Q3

REPORT INFORMATION
  Report Type: Spontaneous
  Country: US (occurrence: US)
  Receive Date: 20250821
  Receipt Date: 20250821
  Transmission Date: 20251020
  Serious: No
  Sender: ODIN PHARMACEUTICALS
  Company Number: A25SM0011

PATIENT

DRUGS (1)
  1. LATANOPROST [Suspect]
     Active Substance: LATANOPROST

REACTIONS (1)
  - Inappropriate schedule of product administration [Unknown]
